FAERS Safety Report 6907755-2 (Version None)
Quarter: 2010Q3

REPORT INFORMATION
  Report Type: 
  Country: None (occurrence: None)
  Receive Date: 20100805
  Receipt Date: 20100803
  Transmission Date: 20110219
  Serious: Yes (Other)
  Sender: FDA-Public Use
  Company Number: JP-SANOFI-AVENTIS-2010SA045332

PATIENT
  Age: 13 Year
  Sex: Male

DRUGS (1)
  1. ALLEGRA [Suspect]
     Route: 048
     Dates: start: 20100731, end: 20100731

REACTIONS (4)
  - FEELING ABNORMAL [None]
  - PALPITATIONS [None]
  - SHOCK [None]
  - VISUAL IMPAIRMENT [None]
